FAERS Safety Report 15239649 (Version 1)
Quarter: 2018Q3

REPORT INFORMATION
  Report Type: Spontaneous
  Country: IE (occurrence: IE)
  Receive Date: 20180803
  Receipt Date: 20180803
  Transmission Date: 20181010
  Serious: Yes (Hospitalization)
  Sender: FDA-Public Use
  Company Number: PHHY2016IE120240

PATIENT
  Age: 46 Year
  Sex: Male

DRUGS (7)
  1. TEMAZEPAM. [Concomitant]
     Active Substance: TEMAZEPAM
     Indication: PRODUCT USED FOR UNKNOWN INDICATION
     Route: 065
  2. NEORAL [Suspect]
     Active Substance: CYCLOSPORINE
     Indication: RENAL TRANSPLANT
     Dosage: UNK
     Route: 065
  3. PREDNISOLONE. [Concomitant]
     Active Substance: PREDNISOLONE
     Indication: PRODUCT USED FOR UNKNOWN INDICATION
     Dosage: 7.5 MG, QD
     Route: 065
  4. AZATHIOPRINE. [Concomitant]
     Active Substance: AZATHIOPRINE
     Indication: PRODUCT USED FOR UNKNOWN INDICATION
     Route: 065
  5. NEORAL [Interacting]
     Active Substance: CYCLOSPORINE
     Indication: IMMUNOSUPPRESSANT DRUG THERAPY
  6. COLCHICINE. [Interacting]
     Active Substance: COLCHICINE
     Indication: GOUTY TOPHUS
     Dosage: 500 UG, QD FOR ATLEAST 6 MONTHS
     Route: 065
  7. RANITIDINE. [Concomitant]
     Active Substance: RANITIDINE
     Indication: PRODUCT USED FOR UNKNOWN INDICATION
     Route: 065

REACTIONS (12)
  - Nervous system disorder [Unknown]
  - Rash erythematous [Unknown]
  - Purpura [Unknown]
  - Hypotonia [Unknown]
  - Neuromyopathy [Recovering/Resolving]
  - Drug interaction [Recovering/Resolving]
  - Areflexia [Unknown]
  - Weight decreased [Unknown]
  - Toxicity to various agents [Unknown]
  - Nausea [Unknown]
  - Diarrhoea [Unknown]
  - Muscle atrophy [Unknown]
